FAERS Safety Report 4997029-1 (Version None)
Quarter: 2006Q2

REPORT INFORMATION
  Report Type: 
  Country: None (occurrence: None)
  Receive Date: 20060509
  Receipt Date: 20060503
  Transmission Date: 20061013
  Serious: Yes (Death, Hospitalization)
  Sender: FDA-Public Use
  Company Number: US-SANOFI-SYNTHELABO-A03200602793

PATIENT
  Sex: Male
  Weight: 175 kg

DRUGS (5)
  1. OXALIPLATIN [Suspect]
     Indication: METASTATIC NEOPLASM
     Route: 042
     Dates: start: 20050802, end: 20050802
  2. ARANESP [Suspect]
     Indication: ANAEMIA OF MALIGNANT DISEASE
     Route: 058
  3. LEUCOVORIN [Suspect]
     Indication: METASTATIC NEOPLASM
     Route: 042
     Dates: start: 20050802, end: 20050803
  4. FLUOROURACIL [Suspect]
     Indication: METASTATIC NEOPLASM
     Route: 042
     Dates: start: 20050802, end: 20050804
  5. AVASTIN [Suspect]
     Indication: METASTATIC NEOPLASM
     Route: 042
     Dates: start: 20050802, end: 20050802

REACTIONS (10)
  - ABDOMINAL DISTENSION [None]
  - ABDOMINAL PAIN [None]
  - BILE DUCT OBSTRUCTION [None]
  - DECREASED APPETITE [None]
  - HEPATIC FAILURE [None]
  - JAUNDICE [None]
  - LETHARGY [None]
  - MALIGNANT NEOPLASM PROGRESSION [None]
  - METASTATIC NEOPLASM [None]
  - OEDEMA PERIPHERAL [None]
